FAERS Safety Report 6538816-8 (Version None)
Quarter: 2010Q1

REPORT INFORMATION
  Report Type: 
  Country: None (occurrence: None)
  Receive Date: 20100114
  Receipt Date: 20100114
  Transmission Date: 20100710
  Serious: Yes (Hospitalization)
  Sender: FDA-Public Use
  Company Number: None

PATIENT
  Sex: Female
  Weight: 81.2 kg

DRUGS (6)
  1. PEG-L-ASPARAGINASE (K-H) [Suspect]
     Dosage: 4925 UNIT
  2. VINCRISTINE SULFATE [Suspect]
     Dosage: 8 MG
  3. ALLOPURINOL [Suspect]
     Dosage: 3900 MG
  4. CYTARABINE [Suspect]
     Dosage: 70 MG
  5. DAUNORUBICIN HCL [Suspect]
     Dosage: 195 MG
  6. METHOTREXATE [Suspect]
     Dosage: 30 MG

REACTIONS (3)
  - DRUG EFFECT DECREASED [None]
  - NEUTROPHIL COUNT DECREASED [None]
  - PYREXIA [None]
